FAERS Safety Report 22347874 (Version 2)
Quarter: 2023Q2

REPORT INFORMATION
  Report Type: Spontaneous
  Country: US (occurrence: US)
  Receive Date: 20230522
  Receipt Date: 20230526
  Transmission Date: 20230722
  Serious: No
  Sender: FDA-Public Use
  Company Number: US-AMGEN-USASP2023085616

PATIENT
  Age: 65 Year
  Sex: Female

DRUGS (1)
  1. EVENITY [Suspect]
     Active Substance: ROMOSOZUMAB-AQQG
     Indication: Product used for unknown indication
     Dosage: UNK
     Route: 058
     Dates: end: 20230426

REACTIONS (5)
  - Upper-airway cough syndrome [Unknown]
  - Glossodynia [Unknown]
  - Asthenia [Unknown]
  - Rash [Unknown]
  - Arthralgia [Unknown]
